FAERS Safety Report 22965560 (Version 3)
Quarter: 2024Q1

REPORT INFORMATION
  Report Type: Spontaneous
  Country: DE (occurrence: DE)
  Receive Date: 20230921
  Receipt Date: 20240131
  Transmission Date: 20240410
  Serious: Yes (Hospitalization, Other)
  Sender: FDA-Public Use
  Company Number: DE-002147023-NVSC2023DE200737

PATIENT
  Age: 69 Year
  Sex: Male
  Weight: 77 kg

DRUGS (6)
  1. TAFINLAR [Suspect]
     Active Substance: DABRAFENIB MESYLATE
     Indication: Non-small cell lung cancer
     Dosage: UNK
     Route: 065
     Dates: start: 201711
  2. TAFINLAR [Suspect]
     Active Substance: DABRAFENIB MESYLATE
     Dosage: 150 MG, BID
     Route: 065
     Dates: start: 2017
  3. MEKINIST [Suspect]
     Active Substance: TRAMETINIB DIMETHYL SULFOXIDE
     Indication: Non-small cell lung cancer
     Dosage: UNK
     Route: 065
     Dates: start: 201711
  4. MEKINIST [Suspect]
     Active Substance: TRAMETINIB DIMETHYL SULFOXIDE
     Dosage: 2 MG, QD
     Route: 065
     Dates: start: 2017
  5. DENOSUMAB [Concomitant]
     Active Substance: DENOSUMAB
     Indication: Bone disorder
     Dosage: UNK
     Route: 065
     Dates: start: 2017
  6. DENOSUMAB [Concomitant]
     Active Substance: DENOSUMAB
     Indication: Non-small cell lung cancer

REACTIONS (10)
  - General physical health deterioration [Recovered/Resolved]
  - Dyspnoea [Recovered/Resolved]
  - Infection [Recovered/Resolved]
  - Pleural effusion [Recovered/Resolved]
  - Pulmonary mass [Unknown]
  - Neoplasm [Unknown]
  - Malignant neoplasm oligoprogression [Unknown]
  - Inflammation [Recovered/Resolved]
  - Metastases to bone [Unknown]
  - Osteosclerosis [Unknown]

NARRATIVE: CASE EVENT DATE: 20190101
